FAERS Safety Report 6266412-9 (Version None)
Quarter: 2009Q3

REPORT INFORMATION
  Report Type: 
  Country: None (occurrence: None)
  Receive Date: 20090709
  Receipt Date: 20090701
  Transmission Date: 20100115
  Serious: Yes (Hospitalization)
  Sender: FDA-Public Use
  Company Number: 1000007199

PATIENT
  Sex: Male

DRUGS (1)
  1. LEXAPRO [Suspect]

REACTIONS (2)
  - THINKING ABNORMAL [None]
  - WITHDRAWAL SYNDROME [None]
